FAERS Safety Report 5921006-7 (Version None)
Quarter: 2008Q4

REPORT INFORMATION
  Report Type: 
  Country: None (occurrence: None)
  Receive Date: 20081016
  Receipt Date: 20081010
  Transmission Date: 20090506
  Serious: Yes (Other)
  Sender: FDA-Public Use
  Company Number: US-WYE-H04172208

PATIENT
  Sex: Female

DRUGS (4)
  1. PREMPHASE 14/14 [Suspect]
     Indication: HORMONE REPLACEMENT THERAPY
  2. FEMHRT [Suspect]
     Indication: HORMONE REPLACEMENT THERAPY
  3. ESTRADIOL [Suspect]
     Indication: HORMONE REPLACEMENT THERAPY
  4. PROVERA [Suspect]
     Indication: HORMONE REPLACEMENT THERAPY

REACTIONS (4)
  - BREAST CANCER METASTATIC [None]
  - BREAST CANCER STAGE III [None]
  - CONTRALATERAL BREAST CANCER [None]
  - METASTASES TO LYMPH NODES [None]
